FAERS Safety Report 9395730 (Version 2)
Quarter: 2013Q3

REPORT INFORMATION
  Report Type: Spontaneous
  Country: FR (occurrence: FR)
  Receive Date: 20130711
  Receipt Date: 20130717
  Transmission Date: 20140515
  Serious: Yes (Other)
  Sender: FDA-Public Use
  Company Number: FR-JNJFOC-20130704942

PATIENT
  Sex: Male

DRUGS (2)
  1. XARELTO 20 [Suspect]
     Indication: ATRIAL FLUTTER
     Route: 048
     Dates: start: 20130410
  2. KARDEGIC 75 [Suspect]
     Indication: PRODUCT USED FOR UNKNOWN INDICATION
     Route: 065
     Dates: start: 20130410

REACTIONS (2)
  - Subclavian artery embolism [Recovering/Resolving]
  - Off label use [Unknown]
